FAERS Safety Report 7628417-2 (Version None)
Quarter: 2011Q3

REPORT INFORMATION
  Report Type: 
  Country: None (occurrence: None)
  Receive Date: 20110722
  Receipt Date: 20110718
  Transmission Date: 20111222
  Serious: No
  Sender: FDA-Public Use
  Company Number: US-PFIZER INC-2011147594

PATIENT
  Sex: Female
  Weight: 56.69 kg

DRUGS (19)
  1. FOSAMAX [Concomitant]
     Indication: BONE DENSITY ABNORMAL
     Dosage: UNK,WEEKLY
     Route: 048
  2. ISOSORBIDE [Concomitant]
     Dosage: 60 MG, 2X/DAY
     Route: 048
  3. VIACTIV /USA/ [Concomitant]
     Dosage: UNK, 2/DAY
     Route: 048
  4. XANAX [Concomitant]
     Indication: ANXIETY
     Dosage: 0.25 MG, 0.5-1 TABLET NIGHTLY, AS NEEDED
     Route: 048
  5. NITROGLYCERIN [Concomitant]
     Dosage: 0.4 MG, AS NEEDED
     Route: 060
  6. TRAMADOL [Concomitant]
     Dosage: 50 MG, 3X/DAY
  7. NEURONTIN [Concomitant]
     Dosage: 300 MG, 2X/DAY
     Route: 048
  8. BACTRIM DS [Concomitant]
     Dosage: 800-160 MG, 1 TABLET 2X/DAY
     Route: 048
  9. CLARITIN [Concomitant]
     Indication: HYPERSENSITIVITY
     Dosage: 10 MG, 1X/DAY
     Route: 048
  10. HYDROCHLOROTHIAZIDE [Concomitant]
     Dosage: UNK, DAILY, 1 TABLET
     Route: 048
  11. LOVASTATIN [Concomitant]
     Dosage: UNK, DAILY
  12. FLUOCINOLONE ACETONIDE [Concomitant]
     Dosage: 0.01 %, 4 DROPS IN BOTH EARS 2X/DAY, OT DROP
     Route: 046
  13. TOPROL-XL [Concomitant]
     Dosage: 25 MG, 1X/DAY
     Route: 048
  14. METOPROLOL [Concomitant]
     Dosage: UNK
  15. MEVACOR [Concomitant]
     Dosage: 20 MG, 1X/DAY
     Route: 048
  16. CHANTIX [Suspect]
     Dosage: UNK
     Route: 048
     Dates: start: 20110601, end: 20110625
  17. VICODIN [Concomitant]
     Indication: PAIN
     Dosage: 5-500MG, EVERY 4 HOURS AS NEEDED
     Route: 048
  18. BACTRIM DS [Concomitant]
     Dosage: UNK
     Route: 048
  19. ASPIRIN [Concomitant]
     Dosage: 325 MG, 1X/DAY
     Route: 048

REACTIONS (2)
  - VOMITING [None]
  - NAUSEA [None]
